FAERS Safety Report 9392752 (Version 1)
Quarter: 2013Q3

REPORT INFORMATION
  Report Type: Spontaneous
  Country: US (occurrence: None)
  Receive Date: 20130708
  Receipt Date: 20130708
  Transmission Date: 20140515
  Serious: Yes (Hospitalization)
  Sender: FDA-Public Use
  Company Number: None

PATIENT
  Age: 84 Year
  Sex: Male
  Weight: 61.8 kg

DRUGS (2)
  1. MORPHINE [Suspect]
     Indication: PAIN
     Route: 042
     Dates: start: 20130509, end: 20130514
  2. MORPHINE [Suspect]
     Indication: PAIN
     Route: 042
     Dates: start: 20130514, end: 20130521

REACTIONS (5)
  - Constipation [None]
  - Intestinal obstruction [None]
  - Gastric haemorrhage [None]
  - Nausea [None]
  - Vomiting [None]
